FAERS Safety Report 25340455 (Version 1)
Quarter: 2025Q2

REPORT INFORMATION
  Report Type: Spontaneous
  Country: US (occurrence: US)
  Receive Date: 20250521
  Receipt Date: 20250521
  Transmission Date: 20250717
  Serious: No
  Sender: GLAXOSMITHKLINE
  Company Number: US-GSKCCFUS-Case-02298741_AE-123656

PATIENT
  Sex: Female

DRUGS (2)
  1. NUCALA [Suspect]
     Active Substance: MEPOLIZUMAB
     Indication: Product used for unknown indication
     Route: 058
     Dates: start: 20250415
  2. NUCALA [Suspect]
     Active Substance: MEPOLIZUMAB
     Dates: start: 20250513

REACTIONS (1)
  - Back pain [Not Recovered/Not Resolved]
